FAERS Safety Report 6680009-8 (Version None)
Quarter: 2010Q2

REPORT INFORMATION
  Report Type: 
  Country: None (occurrence: None)
  Receive Date: 20100413
  Receipt Date: 20100411
  Transmission Date: 20101027
  Serious: Yes (Hospitalization, Other)
  Sender: FDA-Public Use
  Company Number: US-PFIZER INC-2010045371

PATIENT
  Age: 25 Month
  Sex: Male
  Weight: 10.5 kg

DRUGS (3)
  1. METHOTREXATE SODIUM [Suspect]
     Indication: JUVENILE ARTHRITIS
     Dosage: 5 MG, WEEKLY
     Route: 058
     Dates: start: 20090930
  2. PREDNISOLONE [Suspect]
     Indication: JUVENILE ARTHRITIS
     Dosage: 1.5-3  MG, DAILY
     Route: 048
     Dates: start: 20090930, end: 20100218
  3. FOLIC ACID [Concomitant]
     Dosage: 1 MG, 1X/DAY 6 DAYS PER WEEK

REACTIONS (1)
  - PNEUMONIA RESPIRATORY SYNCYTIAL VIRAL [None]
